FAERS Safety Report 13858381 (Version 1)
Quarter: 2017Q3

REPORT INFORMATION
  Report Type: Spontaneous
  Country: US (occurrence: US)
  Receive Date: 20170811
  Receipt Date: 20170811
  Transmission Date: 20171127
  Serious: Yes (Other)
  Sender: FDA-Public Use
  Company Number: US-BRISTOL-MYERS SQUIBB COMPANY-BMS-2017-070959

PATIENT
  Sex: Female
  Weight: 53.97 kg

DRUGS (1)
  1. ORENCIA [Suspect]
     Active Substance: ABATACEPT
     Indication: RHEUMATOID ARTHRITIS
     Dosage: 125 MG, UNK
     Route: 058
     Dates: start: 2016

REACTIONS (6)
  - Ocular hyperaemia [Unknown]
  - Dizziness [Unknown]
  - Skin disorder [Unknown]
  - Pneumonia [Unknown]
  - Nasopharyngitis [Unknown]
  - Eye swelling [Unknown]
